FAERS Safety Report 8311513-4 (Version None)
Quarter: 2012Q2

REPORT INFORMATION
  Report Type: 
  Country: None (occurrence: None)
  Receive Date: 20120425
  Receipt Date: 20120413
  Transmission Date: 20120825
  Serious: Yes (Other)
  Sender: FDA-Public Use
  Company Number: US-ELI_LILLY_AND_COMPANY-US201009004077

PATIENT
  Sex: Female
  Weight: 58 kg

DRUGS (20)
  1. LOVAZA [Concomitant]
  2. LIDOCAINE [Concomitant]
  3. FORTEO [Suspect]
     Indication: OSTEOPOROSIS
     Dosage: 20 UG, QD
     Route: 058
     Dates: start: 20100721
  4. ALBUTEROL [Concomitant]
  5. FLONASE [Concomitant]
  6. CELEBREX [Concomitant]
  7. FORTEO [Suspect]
     Dosage: 20 UG, QD
     Route: 058
  8. DUONEB [Concomitant]
  9. VITAMIN D [Concomitant]
  10. OXYCODONE HCL [Concomitant]
     Dosage: UNK, PRN
  11. FORTEO [Suspect]
     Dosage: 20 UG, QD
     Route: 058
  12. FORTEO [Suspect]
     Dosage: 20 UG, QD
     Route: 058
  13. NAPROXEN [Concomitant]
     Indication: BACK PAIN
     Dosage: UNK, 2/D
  14. ASPIRIN [Concomitant]
  15. FATTY ACIDS NOS [Concomitant]
  16. SIMVASTATIN [Concomitant]
  17. PROLAIR [Concomitant]
  18. CALCIUM [Concomitant]
  19. FORTEO [Suspect]
     Dosage: 20 UG, QD
     Route: 058
  20. ADVAIR DISKUS 100/50 [Concomitant]

REACTIONS (2)
  - ARTHROPATHY [None]
  - PAIN IN EXTREMITY [None]
